FAERS Safety Report 7535812-9 (Version None)
Quarter: 2011Q2

REPORT INFORMATION
  Report Type: 
  Country: None (occurrence: None)
  Receive Date: 20110524
  Receipt Date: 20110127
  Transmission Date: 20111010
  Serious: Yes (Other)
  Sender: FDA-Public Use
  Company Number: 023978

PATIENT
  Sex: Male
  Weight: 73 kg

DRUGS (1)
  1. CIMZIA [Suspect]
     Indication: CROHN'S DISEASE
     Dosage: (400 MG, INDUCTION DOSE SUBCUTANEOUS)
     Route: 058
     Dates: start: 20101203, end: 20101201

REACTIONS (3)
  - PAIN IN EXTREMITY [None]
  - NASOPHARYNGITIS [None]
  - TENDON RUPTURE [None]
